FAERS Safety Report 15290001 (Version 1)
Quarter: 2018Q3

REPORT INFORMATION
  Report Type: Spontaneous
  Country: GB (occurrence: GB)
  Receive Date: 20180817
  Receipt Date: 20180817
  Transmission Date: 20181010
  Serious: Yes (Other)
  Sender: FDA-Public Use
  Company Number: GB-TEVA-2018-GB-942882

PATIENT
  Age: 44 Year
  Sex: Male
  Weight: 100 kg

DRUGS (6)
  1. NAPROXEN. [Suspect]
     Active Substance: NAPROXEN
     Route: 065
     Dates: start: 20180718
  2. CALCITRIOL. [Concomitant]
     Active Substance: CALCITRIOL
     Indication: ILL-DEFINED DISORDER
     Dosage: TWO DAILY
     Route: 065
     Dates: start: 20171211
  3. HYPROMELLOSE [Concomitant]
     Active Substance: HYPROMELLOSES
     Indication: ILL-DEFINED DISORDER
     Dosage: ONE DROP AS NEEDED
     Route: 065
     Dates: start: 20171211
  4. LEVOTHYROXINE. [Concomitant]
     Active Substance: LEVOTHYROXINE
     Indication: ILL-DEFINED DISORDER
     Dosage: TAKE ONE DAILY
     Route: 065
     Dates: start: 20171211
  5. SANDOCAL [Concomitant]
     Indication: ILL-DEFINED DISORDER
     Dosage: TAKE ONE TWICE DAILY
     Dates: start: 20171211
  6. CACIT [Concomitant]
     Active Substance: CALCIUM\VITAMIN D
     Indication: ILL-DEFINED DISORDER
     Dosage: TAKE 2 BD
     Dates: start: 20180404

REACTIONS (1)
  - Pharyngeal oedema [Recovered/Resolved]

NARRATIVE: CASE EVENT DATE: 20180718
